FAERS Safety Report 7371870-2 (Version None)
Quarter: 2011Q1

REPORT INFORMATION
  Report Type: 
  Country: None (occurrence: None)
  Receive Date: 20110310
  Receipt Date: 20110301
  Transmission Date: 20110831
  Serious: Yes (Death, Hospitalization, Other)
  Sender: FDA-Public Use
  Company Number: 2009SP040473

PATIENT
  Age: 29 Year
  Sex: Female

DRUGS (9)
  1. REBIF [Suspect]
     Indication: MULTIPLE SCLEROSIS
     Dosage: 8.8. 44 MCG, TIW, SC
     Route: 058
     Dates: start: 20091116
  2. TRAZODONE HCL [Concomitant]
  3. XANAX [Concomitant]
  4. SOMA [Concomitant]
  5. COUMADIN [Concomitant]
  6. GEODON [Concomitant]
  7. REMERON [Suspect]
     Indication: PRODUCT USED FOR UNKNOWN INDICATION
     Dates: start: 20091120
  8. VICODIN [Concomitant]
  9. EFFEXOR [Concomitant]

REACTIONS (4)
  - OVERDOSE [None]
  - EAR INFECTION [None]
  - SUICIDAL IDEATION [None]
  - OROPHARYNGEAL PAIN [None]
